FAERS Safety Report 18860517 (Version 1)
Quarter: 2021Q1

REPORT INFORMATION
  Report Type: Spontaneous
  Country: US (occurrence: US)
  Receive Date: 20210208
  Receipt Date: 20210208
  Transmission Date: 20210420
  Serious: Yes (Other)
  Sender: FDA-Public Use
  Company Number: US-PFIZER INC-2021117431

PATIENT
  Age: 44 Year
  Sex: Male

DRUGS (3)
  1. ZYVOX [Suspect]
     Active Substance: LINEZOLID
     Dosage: 600 MG
  2. LINEZOLID. [Suspect]
     Active Substance: LINEZOLID
     Indication: INFECTION
     Dosage: 600 MG
  3. GABAPENTIN. [Concomitant]
     Active Substance: GABAPENTIN
     Dosage: UNK

REACTIONS (20)
  - Malaise [Unknown]
  - Heart rate irregular [Unknown]
  - Dyspnoea [Unknown]
  - Feeding disorder [Unknown]
  - Palpitations [Unknown]
  - Feeling hot [Unknown]
  - Hypersensitivity [Unknown]
  - Nausea [Unknown]
  - Abnormal faeces [Unknown]
  - Headache [Unknown]
  - Abdominal pain [Unknown]
  - Diarrhoea [Unknown]
  - Chest discomfort [Unknown]
  - Weight decreased [Unknown]
  - Blood pressure increased [Unknown]
  - Hyperhidrosis [Unknown]
  - Loss of consciousness [Unknown]
  - Chest pain [Unknown]
  - Asthenia [Unknown]
  - Abdominal discomfort [Unknown]
